FAERS Safety Report 22313819 (Version 5)
Quarter: 2024Q2

REPORT INFORMATION
  Report Type: Spontaneous
  Country: US (occurrence: US)
  Receive Date: 20230512
  Receipt Date: 20240612
  Transmission Date: 20240716
  Serious: Yes (Hospitalization)
  Sender: FDA-Public Use
  Company Number: US-PFIZER INC-PV202300084630

PATIENT
  Age: 66 Year
  Sex: Female
  Weight: 78.92 kg

DRUGS (2)
  1. PREMARIN [Suspect]
     Active Substance: ESTROGENS, CONJUGATED
     Indication: Urinary tract infection
     Dosage: ONCE EVERY OTHER 0.5 DAY
     Dates: start: 1995
  2. PREMARIN [Suspect]
     Active Substance: ESTROGENS, CONJUGATED
     Dosage: PLACE 0.5GM VAGINALLY EVERY OTHER DAY
     Route: 067

REACTIONS (3)
  - Fall [Unknown]
  - Knee arthroplasty [Unknown]
  - Off label use [Unknown]

NARRATIVE: CASE EVENT DATE: 20200101
